FAERS Safety Report 20501698 (Version 2)
Quarter: 2022Q1

REPORT INFORMATION
  Report Type: Report from Study
  Country: CA (occurrence: None)
  Receive Date: 20220222
  Receipt Date: 20220314
  Transmission Date: 20220423
  Serious: Yes (Hospitalization)
  Sender: FDA-Public Use
  Company Number: CA-Merck Healthcare KGaA-9300531

PATIENT
  Age: 63 Year
  Sex: Male
  Weight: 60 kg

DRUGS (1)
  1. BAVENCIO [Suspect]
     Active Substance: AVELUMAB
     Indication: Transitional cell carcinoma
     Route: 042
     Dates: start: 20220203

REACTIONS (4)
  - Intestinal obstruction [Unknown]
  - Fall [Unknown]
  - Hypotension [Unknown]
  - Asthenia [Unknown]

NARRATIVE: CASE EVENT DATE: 20220201
